FAERS Safety Report 9475568 (Version 1)
Quarter: 2013Q3

REPORT INFORMATION
  Report Type: Spontaneous
  Country: US (occurrence: None)
  Receive Date: 20130821
  Receipt Date: 20130821
  Transmission Date: 20140515
  Serious: Yes (Other)
  Sender: FDA-Public Use
  Company Number: 201308000244

PATIENT
  Age: 5 Month
  Sex: Male

DRUGS (5)
  1. NITRIC OXIDE [Suspect]
     Indication: HYPOXIA
     Dosage: 40 PPM
  2. NITRIC OXIDE [Suspect]
     Indication: RESPIRATORY DISTRESS
     Dosage: 40 PPM
  3. DIURETICS [Concomitant]
  4. MILRINONE (MILRINONE) [Concomitant]
  5. OXYGEN (OXYGEN) [Concomitant]

REACTIONS (3)
  - Pulmonary oedema [None]
  - Pleural effusion [None]
  - Off label use [None]
